FAERS Safety Report 9543340 (Version 3)
Quarter: 2013Q4

REPORT INFORMATION
  Report Type: Spontaneous
  Country: US (occurrence: US)
  Receive Date: 20130923
  Receipt Date: 20131029
  Transmission Date: 20140711
  Serious: Yes (Other)
  Sender: FDA-Public Use
  Company Number: US-PFIZER INC-2013270511

PATIENT
  Age: 76 Year
  Sex: Female

DRUGS (2)
  1. CELEBREX [Suspect]
     Indication: PAIN
     Dosage: 200 MG, UNK
  2. CELEBREX [Suspect]
     Indication: ARTHRITIS

REACTIONS (5)
  - Haemorrhage [Unknown]
  - Diarrhoea haemorrhagic [Unknown]
  - Dizziness [Unknown]
  - Drug effect incomplete [Unknown]
  - Decreased appetite [Unknown]
